FAERS Safety Report 19836781 (Version 1)
Quarter: 2021Q3

REPORT INFORMATION
  Report Type: Spontaneous
  Country: US (occurrence: US)
  Receive Date: 20210915
  Receipt Date: 20210915
  Transmission Date: 20211014
  Serious: No
  Sender: FDA-Public Use
  Company Number: US-BIOHAVEN PHARMACEUTICALS-2021BHV00767

PATIENT
  Age: 53 Year
  Sex: Female
  Weight: 63.49 kg

DRUGS (4)
  1. GABAPENTIN. [Concomitant]
     Active Substance: GABAPENTIN
  2. NURTEC ODT [Suspect]
     Active Substance: RIMEGEPANT SULFATE
     Dosage: UNK
     Dates: start: 20210430
  3. CELEBREX [Concomitant]
     Active Substance: CELECOXIB
  4. NURTEC ODT [Suspect]
     Active Substance: RIMEGEPANT SULFATE
     Dosage: 150 MG (2 TABLETS) WITHIN 24 HOURS
     Route: 048
     Dates: start: 20210428, end: 20210429

REACTIONS (2)
  - Overdose [Recovered/Resolved]
  - Drug ineffective [Not Recovered/Not Resolved]

NARRATIVE: CASE EVENT DATE: 20210428
